FAERS Safety Report 14773035 (Version 3)
Quarter: 2018Q2

REPORT INFORMATION
  Report Type: Spontaneous
  Country: US (occurrence: US)
  Receive Date: 20180418
  Receipt Date: 20180606
  Transmission Date: 20180711
  Serious: No
  Sender: FDA-Public Use
  Company Number: US-PFIZER INC-2018154246

PATIENT
  Age: 61 Year
  Sex: Female
  Weight: 127 kg

DRUGS (4)
  1. DULOXETINE. [Concomitant]
     Active Substance: DULOXETINE
     Indication: FIBROMYALGIA
     Dosage: 90 MG, DAILY
  2. PHENTERMINE. [Concomitant]
     Active Substance: PHENTERMINE
     Indication: WEIGHT DECREASED
     Dosage: 37.5 MG, DAILY
  3. SODIUM BICARBONATE. [Suspect]
     Active Substance: SODIUM BICARBONATE
     Indication: SKIN COSMETIC PROCEDURE
     Dosage: 800 ML, (800CC IN BILATERAL UPPER EXTREMITIES)
     Dates: start: 20170606, end: 20170606
  4. L-THYROXINE [Concomitant]
     Active Substance: LEVOTHYROXINE
     Dosage: 75 UG, DAILY

REACTIONS (4)
  - Product use issue [Recovered/Resolved]
  - Impaired healing [Recovered/Resolved]
  - Product sterility lacking [Recovered/Resolved]
  - Product contamination [Recovered/Resolved]

NARRATIVE: CASE EVENT DATE: 201706
